FAERS Safety Report 25875935 (Version 1)
Quarter: 2025Q4

REPORT INFORMATION
  Report Type: Spontaneous
  Country: JP (occurrence: JP)
  Receive Date: 20251003
  Receipt Date: 20251003
  Transmission Date: 20260117
  Serious: Yes (Death)
  Sender: DAIICHI
  Company Number: JP-DAIICHI SANKYO, INC.-DS-2025-163337-JP

PATIENT
  Age: 46 Year
  Sex: Female
  Weight: 58.5 kg

DRUGS (3)
  1. DATROWAY [Suspect]
     Active Substance: DATOPOTAMAB DERUXTECAN-DLNK
     Indication: Hormone receptor positive HER2 negative breast cancer
     Dosage: 3.4 MG/KG
     Route: 065
     Dates: start: 20250730, end: 20250730
  2. HUMAN RED BLOOD CELL [Concomitant]
     Active Substance: HUMAN RED BLOOD CELL
     Indication: Myelosuppression
     Dosage: DAILY DOSE 2U
     Route: 065
     Dates: start: 20250729
  3. MEDICAL NARCOTICS [Concomitant]
     Indication: Dyspnoea exertional
     Dosage: UNK
     Route: 065

REACTIONS (3)
  - Interstitial lung disease [Fatal]
  - Disease progression [Fatal]
  - Underdose [Unknown]

NARRATIVE: CASE EVENT DATE: 20250101
